FAERS Safety Report 5195368-5 (Version None)
Quarter: 2006Q4

REPORT INFORMATION
  Report Type: 
  Country: None (occurrence: None)
  Receive Date: 20061229
  Receipt Date: 20061220
  Transmission Date: 20070319
  Serious: Yes (Other)
  Sender: FDA-Public Use
  Company Number: FR-PFIZER INC-2006155308

PATIENT
  Age: 76 Year
  Sex: Male

DRUGS (7)
  1. TAHOR [Suspect]
  2. ZINC GLUCONATE [Concomitant]
  3. SEVELAMER [Concomitant]
  4. ATENOLOL [Concomitant]
  5. ZOPICLONE [Concomitant]
  6. DRUG, UNSPECIFIED [Concomitant]
  7. ASPIRIN [Concomitant]

REACTIONS (2)
  - POLYNEUROPATHY [None]
  - VERTIGO [None]
